FAERS Safety Report 16898512 (Version 1)
Quarter: 2019Q4

REPORT INFORMATION
  Report Type: Spontaneous
  Country: US (occurrence: US)
  Receive Date: 20191008
  Receipt Date: 20191008
  Transmission Date: 20200122
  Serious: Yes (Hospitalization, Other)
  Sender: FDA-Public Use
  Company Number: None

PATIENT
  Age: 26 Year
  Sex: Female
  Weight: 169.2 kg

DRUGS (3)
  1. EQUATE COOL AND HEAT PAIN RELIEVING LIQUID [Suspect]
     Active Substance: MENTHOL
     Indication: MYALGIA
     Dosage: ?          OTHER STRENGTH:2.5 FL OZ;QUANTITY:1 OUNCE(S);?
     Route: 061
     Dates: start: 20191007, end: 20191007
  2. DUAL NEB BREATHING TREATMENTS EVERY 6 HOURS [Concomitant]
  3. TYLENOL [Concomitant]
     Active Substance: ACETAMINOPHEN

REACTIONS (1)
  - Application site burn [None]

NARRATIVE: CASE EVENT DATE: 20191007
